FAERS Safety Report 7361648-8 (Version None)
Quarter: 2011Q1

REPORT INFORMATION
  Report Type: 
  Country: None (occurrence: None)
  Receive Date: 20110318
  Receipt Date: 20110311
  Transmission Date: 20110831
  Serious: Yes (Death)
  Sender: FDA-Public Use
  Company Number: FR-JNJFOC-20110104779

PATIENT
  Age: 32 Year
  Sex: Male

DRUGS (4)
  1. ACETAMINOPHEN AND TRAMADOL HCL [Concomitant]
     Route: 065
  2. DURAGESIC-100 [Suspect]
     Indication: PRODUCT USED FOR UNKNOWN INDICATION
     Dosage: 4 PATCHES
     Route: 062
  3. ANALGESIC [Concomitant]
     Route: 065
  4. DEXTROPROPOXYPHENE [Concomitant]
     Route: 065

REACTIONS (4)
  - INCORRECT DOSE ADMINISTERED [None]
  - INTENTIONAL DRUG MISUSE [None]
  - OVERDOSE [None]
  - RESPIRATORY ARREST [None]
